FAERS Safety Report 5716702-0 (Version None)
Quarter: 2008Q2

REPORT INFORMATION
  Report Type: 
  Country: None (occurrence: None)
  Receive Date: 20080424
  Receipt Date: 20070409
  Transmission Date: 20081010
  Serious: No
  Sender: FDA-Public Use
  Company Number: US-BAYER-200711166BWH

PATIENT
  Age: 76 Year
  Sex: Male

DRUGS (12)
  1. LEVITRA [Suspect]
     Indication: DRUG USE FOR UNKNOWN INDICATION
     Dosage: TOTAL DAILY DOSE: 20 MG  UNIT DOSE: 20 MG
     Route: 048
     Dates: start: 20070409
  2. LEVITRA [Suspect]
     Dosage: TOTAL DAILY DOSE: 20 MG  UNIT DOSE: 20 MG
     Route: 048
     Dates: start: 20070409
  3. PLAVIX [Concomitant]
  4. LIPITOR [Concomitant]
  5. FUROSEMIDE [Concomitant]
  6. AVAPRO [Concomitant]
  7. TOPROL-XL [Concomitant]
  8. DIGOXIN [Concomitant]
  9. SINGULAIR [Concomitant]
  10. ADVAIR HFA [Concomitant]
  11. RHINOCORT [Concomitant]
  12. MULTIVITAMIN (NOS) [Concomitant]

REACTIONS (1)
  - INCORRECT DOSE ADMINISTERED [None]
